FAERS Safety Report 6686347-7 (Version None)
Quarter: 2010Q2

REPORT INFORMATION
  Report Type: 
  Country: None (occurrence: None)
  Receive Date: 20100414
  Receipt Date: 20100328
  Transmission Date: 20101027
  Serious: Yes (Hospitalization, Other)
  Sender: FDA-Public Use
  Company Number: 220003J09CAN

PATIENT
  Age: 11 Year
  Sex: Female
  Weight: 43.4 kg

DRUGS (3)
  1. SAIZEN [Suspect]
     Indication: CONGENITAL ANOMALY
     Dosage: 1.76 MG, 6 IN 1 WK, SUBCUTANEOUS; 25 %, 6 IN 1 WK, SUBCUTANEOUS; 25 % 6 IN 1 WK, SUBCUTANEOUS
     Route: 058
     Dates: start: 20080319, end: 20090101
  2. SAIZEN [Suspect]
     Indication: CONGENITAL ANOMALY
     Dosage: 1.76 MG, 6 IN 1 WK, SUBCUTANEOUS; 25 %, 6 IN 1 WK, SUBCUTANEOUS; 25 % 6 IN 1 WK, SUBCUTANEOUS
     Route: 058
     Dates: start: 20090910, end: 20090901
  3. SAIZEN [Suspect]
     Indication: CONGENITAL ANOMALY
     Dosage: 1.76 MG, 6 IN 1 WK, SUBCUTANEOUS; 25 %, 6 IN 1 WK, SUBCUTANEOUS; 25 % 6 IN 1 WK, SUBCUTANEOUS
     Route: 058
     Dates: start: 20100301, end: 20100326

REACTIONS (7)
  - BENIGN INTRACRANIAL HYPERTENSION [None]
  - DIPLOPIA [None]
  - DISEASE RECURRENCE [None]
  - LYMPHOEDEMA [None]
  - MIGRAINE [None]
  - PAPILLOEDEMA [None]
  - VISION BLURRED [None]
